FAERS Safety Report 20448684 (Version 1)
Quarter: 2022Q1

REPORT INFORMATION
  Report Type: Spontaneous
  Country: CN (occurrence: CN)
  Receive Date: 20220209
  Receipt Date: 20220209
  Transmission Date: 20220423
  Serious: Yes (Life-Threatening, Hospitalization)
  Sender: FDA-Public Use
  Company Number: CN-GLAXOSMITHKLINE-CNCH2022APC005251

PATIENT
  Age: 71 Year
  Sex: Female
  Weight: 57 kg

DRUGS (1)
  1. IBUPROFEN [Suspect]
     Active Substance: IBUPROFEN
     Indication: Intervertebral disc protrusion
     Dosage: 0.3 G, BID
     Route: 048
     Dates: start: 20220129, end: 20220201

REACTIONS (9)
  - Rash erythematous [Unknown]
  - Pruritus [Unknown]
  - Oral mucosa erosion [Unknown]
  - Genital erosion [Unknown]
  - Erythema [Unknown]
  - Rash papular [Unknown]
  - Pain [Unknown]
  - Condition aggravated [Unknown]
  - Product use in unapproved indication [Unknown]

NARRATIVE: CASE EVENT DATE: 20220129
